FAERS Safety Report 16981076 (Version 1)
Quarter: 2019Q4

REPORT INFORMATION
  Report Type: Spontaneous
  Country: US (occurrence: US)
  Receive Date: 20191031
  Receipt Date: 20191031
  Transmission Date: 20200122
  Serious: Yes (Other)
  Sender: FDA-Public Use
  Company Number: US-BAUSCH-BL-2018-009563

PATIENT
  Age: 76 Year
  Sex: Male

DRUGS (8)
  1. 5-FLUOROURACIL [Suspect]
     Active Substance: FLUOROURACIL
     Indication: BLADDER CANCER
     Dosage: GEM-FLIP (SYSTEMIC); FIRST CYCLE
     Route: 065
  2. CISPLATIN. [Suspect]
     Active Substance: CISPLATIN
     Dosage: RESTARTED GEM-FLIP (SYSTEMIC); SECOND CYCLE; REDUCED DOSE
     Route: 065
  3. GEMZAR [Suspect]
     Active Substance: GEMCITABINE HYDROCHLORIDE
     Dosage: GEM-FLIP (SYSTEMIC); SECOND CYCLE; REDUCED DOSE
     Route: 065
  4. LEUCOVORIN. [Suspect]
     Active Substance: LEUCOVORIN
     Dosage: GEM-FLIP (SYSTEMIC); SECOND CYCLE; REDUCED DOSE
     Route: 065
  5. GEMZAR [Suspect]
     Active Substance: GEMCITABINE HYDROCHLORIDE
     Indication: BLADDER CANCER
     Dosage: RESTARTED GEM-FLIP (SYSTEMIC); SECOND CYCLE; REDUCED DOSE
     Route: 065
  6. 5-FLUOROURACIL [Suspect]
     Active Substance: FLUOROURACIL
     Dosage: RESTARTED GEM-FLIP (SYSTEMIC); SECOND CYCLE; REDUCED DOSE
     Route: 065
  7. LEUCOVORIN. [Suspect]
     Active Substance: LEUCOVORIN
     Indication: BLADDER CANCER
     Dosage: RESTARTED GEM-FLIP (SYSTEMIC); SECOND CYCLE; REDUCED DOSE
     Route: 065
  8. CISPLATIN. [Suspect]
     Active Substance: CISPLATIN
     Indication: BLADDER CANCER
     Dosage: GEM-FLIP (SYSTEMIC); FIRST CYCLE
     Route: 065

REACTIONS (2)
  - Fistula [Unknown]
  - Toxicity to various agents [Unknown]
